FAERS Safety Report 10138456 (Version 2)
Quarter: 2015Q1

REPORT INFORMATION
  Report Type: Report from Study
  Country: JP (occurrence: JP)
  Receive Date: 20140429
  Receipt Date: 20150330
  Transmission Date: 20150720
  Serious: Yes (Life-Threatening, Hospitalization, Disabling)
  Sender: FDA-Public Use
  Company Number: JP-SA-2014SA054514

PATIENT
  Age: 20 Year
  Sex: Male
  Weight: 71.6 kg

DRUGS (12)
  1. CALONAL [Suspect]
     Active Substance: ACETAMINOPHEN
     Indication: PROPHYLAXIS
     Route: 065
     Dates: start: 20130828, end: 20130901
  2. PREDONINE [Concomitant]
     Active Substance: PREDNISOLONE\PREDNISOLONE ACETATE\PREDNISOLONE SODIUM SUCCINATE
     Indication: PROPHYLAXIS
     Dates: start: 20130902, end: 20131015
  3. SAXIZON [Concomitant]
     Active Substance: HYDROCORTISONE SODIUM SUCCINATE
     Indication: PROPHYLAXIS
     Dates: start: 20130828, end: 20130913
  4. THYMOGLOBULINE [Suspect]
     Active Substance: LAPINE T-LYMPHOCYTE IMMUNE GLOBULIN
     Indication: APLASTIC ANAEMIA
     Route: 042
     Dates: start: 20130828, end: 20130901
  5. POLYMYXIN B SULFATE. [Concomitant]
     Active Substance: POLYMYXIN B SULFATE
     Indication: PROPHYLAXIS
     Dates: start: 20130828, end: 20131030
  6. NEORAL [Suspect]
     Active Substance: CYCLOSPORINE
     Indication: APLASTIC ANAEMIA
     Route: 065
     Dates: start: 20130828
  7. POLARAMINE [Suspect]
     Active Substance: DEXCHLORPHENIRAMINE MALEATE
     Indication: PROPHYLAXIS
     Route: 065
     Dates: start: 20130828, end: 20130901
  8. VALTREX [Suspect]
     Active Substance: VALACYCLOVIR HYDROCHLORIDE
     Indication: ANTIVIRAL PROPHYLAXIS
     Route: 065
     Dates: start: 20130828, end: 20131130
  9. SOL-MELCORT [Concomitant]
     Active Substance: METHYLPREDNISOLONE SODIUM SUCCINATE
     Indication: PROPHYLAXIS
     Dates: start: 20130829, end: 20130901
  10. MAGLAX [Concomitant]
     Active Substance: MAGNESIUM OXIDE
     Indication: CONSTIPATION PROPHYLAXIS
     Dates: start: 20130828, end: 20131130
  11. ITRACONAZOLE. [Suspect]
     Active Substance: ITRACONAZOLE
     Indication: PROPHYLAXIS
     Route: 065
     Dates: start: 20130828, end: 20131030
  12. FAMOTIDINE. [Concomitant]
     Active Substance: FAMOTIDINE
     Indication: PROPHYLAXIS AGAINST GASTROINTESTINAL ULCER
     Dates: start: 20130828, end: 20131130

REACTIONS (10)
  - Abscess limb [Recovering/Resolving]
  - Platelet count decreased [Not Recovered/Not Resolved]
  - Activated partial thromboplastin time prolonged [Recovered/Resolved]
  - Staphylococcal sepsis [Recovered/Resolved]
  - Alanine aminotransferase increased [Recovered/Resolved]
  - Febrile neutropenia [Recovered/Resolved]
  - Febrile neutropenia [Recovering/Resolving]
  - White blood cell count decreased [Recovered/Resolved]
  - Blood glucose increased [Recovered/Resolved]
  - C-reactive protein increased [Recovered/Resolved]

NARRATIVE: CASE EVENT DATE: 20130829
